FAERS Safety Report 25431559 (Version 1)
Quarter: 2025Q2

REPORT INFORMATION
  Report Type: Spontaneous
  Country: ES (occurrence: ES)
  Receive Date: 20250613
  Receipt Date: 20250613
  Transmission Date: 20250716
  Serious: Yes (Other)
  Sender: BOEHRINGER INGELHEIM
  Company Number: ES-BoehringerIngelheim-2025-BI-075770

PATIENT
  Age: 61 Year
  Sex: Female
  Weight: 69 kg

DRUGS (10)
  1. NINTEDANIB [Suspect]
     Active Substance: NINTEDANIB
     Indication: Idiopathic pulmonary fibrosis
     Dates: start: 2019, end: 2024
  2. PIRFENIDONE [Suspect]
     Active Substance: PIRFENIDONE
     Indication: Idiopathic pulmonary fibrosis
     Dates: start: 202405
  3. PANTOPRAZOLE [Concomitant]
     Active Substance: PANTOPRAZOLE
     Indication: Product used for unknown indication
     Dosage: 40 MG QD
  4. VALSARTAN [Concomitant]
     Active Substance: VALSARTAN
     Indication: Product used for unknown indication
  5. TORSEMIDE [Concomitant]
     Active Substance: TORSEMIDE
     Indication: Product used for unknown indication
     Dosage: 1 MG QD
  6. Ezetibe [Concomitant]
     Indication: Product used for unknown indication
     Dosage: QD
  7. CINITAPRIDE [Concomitant]
     Active Substance: CINITAPRIDE
     Indication: Product used for unknown indication
     Dosage: TID
  8. CLONAZEPAM [Concomitant]
     Active Substance: CLONAZEPAM
     Indication: Product used for unknown indication
     Dosage: 0.5 MG-0.25 MG-0.5 MG
  9. DULOXETINE [Concomitant]
     Active Substance: DULOXETINE
     Indication: Product used for unknown indication
     Dosage: 60 MG QD
  10. DULOXETINE [Concomitant]
     Active Substance: DULOXETINE
     Dosage: 30 MG QD

REACTIONS (3)
  - Idiopathic pulmonary fibrosis [Unknown]
  - Atrial fibrillation [Unknown]
  - Diarrhoea [Recovered/Resolved]

NARRATIVE: CASE EVENT DATE: 20140101
